FAERS Safety Report 8064718-4 (Version None)
Quarter: 2012Q1

REPORT INFORMATION
  Report Type: 
  Country: None (occurrence: None)
  Receive Date: 20120123
  Receipt Date: 20120111
  Transmission Date: 20120608
  Serious: Yes (Hospitalization, Other)
  Sender: FDA-Public Use
  Company Number: US-ELI_LILLY_AND_COMPANY-US201112003807

PATIENT
  Sex: Female
  Weight: 54.43 kg

DRUGS (33)
  1. ZOLOFT [Concomitant]
     Dosage: 75 MG, QD
     Route: 048
  2. OXYGEN [Concomitant]
     Dosage: 3 L, PRN
  3. GABAPENTIN [Concomitant]
     Dosage: 100 MG, TID
     Route: 048
  4. PROAIR HFA [Concomitant]
     Dosage: 2 DF, PRN
  5. THEOPHYLLINE [Concomitant]
     Dosage: 400 MG, QD
     Route: 048
  6. VITAMIN D [Concomitant]
     Dosage: 5000 U, QD
     Route: 048
  7. MIRALAX [Concomitant]
     Dosage: 34 G, PRN
     Route: 048
  8. SENNOSIDE A+B [Concomitant]
     Dosage: 17.2 MG, BID
     Route: 048
  9. THEOPHYLLINE [Concomitant]
     Dosage: 300 MG, 3/W
     Route: 048
  10. MULTI-VITAMINS [Concomitant]
     Dosage: 1 DF, QD
     Route: 048
  11. SYNTHROID [Concomitant]
     Dosage: 50 UG, QD
     Route: 048
  12. SINGULAIR [Concomitant]
     Dosage: 1 DF, QD
     Route: 048
  13. MORPHINE SULFATE [Concomitant]
     Dosage: 1.5 DF, PRN
  14. ALBUTEROL SULFATE [Concomitant]
  15. SPIRIVA [Concomitant]
     Dosage: 18 UG, QD
  16. SYMBICORT [Concomitant]
     Dosage: 2 DF, PRN
  17. OXYBUTYNIN CHLORIDE [Concomitant]
     Dosage: 1 DF, PRN
     Route: 048
  18. FORTICAL                           /00371903/ [Concomitant]
     Dosage: 200 U, QD
  19. COUMADIN [Concomitant]
     Dosage: 3.0 MG, WEEKLY (1/W)
  20. FORTEO [Suspect]
     Indication: OSTEOPOROSIS
     Dosage: 20 UG, QD
  21. FOLIC ACID [Concomitant]
     Dosage: 1 MG, QD
     Route: 048
  22. METOPROLOL SUCCINATE [Concomitant]
     Dosage: 25 MG, QD
  23. RANITIDINE HCL [Concomitant]
     Dosage: 150 MG, BID
     Route: 048
  24. PREDNISONE [Concomitant]
     Dosage: 5 MG, UNK
     Route: 048
  25. FUROSEMIDE [Concomitant]
     Dosage: 20 MG, QD
  26. MORPHINE SULFATE [Concomitant]
     Indication: PAIN
     Dosage: 1 DF, PRN
     Route: 048
  27. BONIVA [Concomitant]
     Dosage: 150 MG, MONTHLY (1/M)
     Route: 048
  28. PROMETHAZINE HCL [Concomitant]
     Indication: NAUSEA
     Dosage: 25 MG, PRN
     Route: 048
  29. FERROUS SULFATE TAB [Concomitant]
     Dosage: 324 MG, BID
     Route: 048
  30. SINEMET [Concomitant]
     Dosage: 1 DF, QD
     Route: 048
  31. LISINOPRIL [Concomitant]
     Dosage: 5 MG, QD
  32. COUMADIN [Concomitant]
     Dosage: 1.5 MG, 4/W
  33. METHOTREXATE [Concomitant]
     Dosage: 20 MG, WEEKLY (1/W)
     Route: 048

REACTIONS (6)
  - ANAEMIA [None]
  - CHRONIC OBSTRUCTIVE PULMONARY DISEASE [None]
  - PNEUMONIA ASPIRATION [None]
  - IMPAIRED GASTRIC EMPTYING [None]
  - BACK PAIN [None]
  - PNEUMONIA STAPHYLOCOCCAL [None]
